FAERS Safety Report 6521694-0 (Version None)
Quarter: 2009Q4

REPORT INFORMATION
  Report Type: 
  Country: None (occurrence: None)
  Receive Date: 20091230
  Receipt Date: 20091225
  Transmission Date: 20100525
  Serious: Yes (Death, Disabling, Other)
  Sender: FDA-Public Use
  Company Number: PHHY2009JP56415

PATIENT
  Sex: Female
  Weight: 44 kg

DRUGS (6)
  1. ZOMETA [Suspect]
     Indication: METASTASES TO BONE
     Dosage: 4 MG, UNK
     Route: 042
     Dates: start: 20060101, end: 20081001
  2. ZOMETA [Suspect]
     Dosage: UNK
     Dates: start: 20091101, end: 20091101
  3. BISPHONAL [Suspect]
     Indication: METASTASES TO BONE
     Dosage: UNK
     Route: 042
     Dates: start: 20060101, end: 20060401
  4. TAXOL [Suspect]
     Indication: BREAST CANCER
     Dosage: 120 MG, UNK
     Route: 042
     Dates: start: 20060101
  5. TAXOTERE [Suspect]
     Indication: BREAST CANCER
     Dosage: 120 MG, UNK
     Route: 042
     Dates: start: 20060401, end: 20081001
  6. ARIMIDEX [Suspect]
     Indication: BREAST CANCER
     Dosage: 1 MG, UNK
     Route: 048
     Dates: start: 20060101, end: 20081001

REACTIONS (4)
  - BONE DISORDER [None]
  - HEPATIC FAILURE [None]
  - JAW DISORDER [None]
  - OSTEONECROSIS [None]
